FAERS Safety Report 5649301-X (Version None)
Quarter: 2008Q1

REPORT INFORMATION
  Report Type: 
  Country: None (occurrence: None)
  Receive Date: 20080304
  Receipt Date: 20071211
  Transmission Date: 20080703
  Serious: No
  Sender: FDA-Public Use
  Company Number: US-BAYER-200716674NA

PATIENT
  Age: 33 Year
  Sex: Female
  Weight: 109 kg

DRUGS (1)
  1. MAGNEVIST [Suspect]
     Indication: NUCLEAR MAGNETIC RESONANCE IMAGING
     Dosage: UNIT DOSE: 15 ML
     Dates: start: 20071126, end: 20071126

REACTIONS (1)
  - NAUSEA [None]
